FAERS Safety Report 5919525-2 (Version None)
Quarter: 2008Q4

REPORT INFORMATION
  Report Type: 
  Country: None (occurrence: None)
  Receive Date: 20081015
  Receipt Date: 20081010
  Transmission Date: 20090506
  Serious: Yes (Other)
  Sender: FDA-Public Use
  Company Number: US-ABBOTT-08P-163-0480953-00

PATIENT
  Age: 53 Year
  Sex: Male

DRUGS (1)
  1. HUMIRA [Suspect]
     Indication: GRANULOMA ANNULARE
     Route: 058
     Dates: start: 20071202, end: 20080701

REACTIONS (1)
  - CHRONIC LYMPHOCYTIC LEUKAEMIA [None]
